FAERS Safety Report 15366083 (Version 1)
Quarter: 2018Q3

REPORT INFORMATION
  Report Type: Report from Study
  Country: GT (occurrence: GT)
  Receive Date: 20180910
  Receipt Date: 20180910
  Transmission Date: 20181010
  Serious: Yes (Other)
  Sender: FDA-Public Use
  Company Number: PHHY2018GT091122

PATIENT
  Age: 82 Year
  Sex: Male

DRUGS (2)
  1. EXFORGE HCT [Suspect]
     Active Substance: AMLODIPINE BESYLATE\HYDROCHLOROTHIAZIDE\VALSARTAN
     Indication: PRODUCT USED FOR UNKNOWN INDICATION
     Dosage: 1 DF (AMLODIPINE 5 MG, HYDROCHLOROTHIAZIDE 25 MG, VALSARTAN 160 MG), QD
     Route: 065
  2. EXFORGE HCT [Suspect]
     Active Substance: AMLODIPINE BESYLATE\HYDROCHLOROTHIAZIDE\VALSARTAN
     Dosage: 0.5 DF (AMLODIPINE 5 MG, HYDROCHLOROTHIAZIDE 25 MG, VALSARTAN 160 MG), QD
     Route: 065
     Dates: end: 20180816

REACTIONS (2)
  - Cerebral infarction [Unknown]
  - Wrong technique in product usage process [Recovered/Resolved]
